FAERS Safety Report 7095804-3 (Version None)
Quarter: 2010Q4

REPORT INFORMATION
  Report Type: 
  Country: None (occurrence: None)
  Receive Date: 20101109
  Receipt Date: 20101109
  Transmission Date: 20110411
  Serious: Yes (Other)
  Sender: FDA-Public Use
  Company Number: None

PATIENT
  Age: 36 Year
  Sex: Female
  Weight: 54.5 kg

DRUGS (1)
  1. ZYRTEC-D 5 MG MCNEIL PHARMACEUTICALS [Suspect]
     Indication: SEASONAL ALLERGY
     Dosage: 5 MG 1X DAILY ORAL
     Route: 048
     Dates: start: 20080101, end: 20100101

REACTIONS (5)
  - DRUG DOSE OMISSION [None]
  - HEADACHE [None]
  - PRURITUS [None]
  - SINUSITIS [None]
  - URTICARIA [None]
